FAERS Safety Report 14387388 (Version 4)
Quarter: 2018Q2

REPORT INFORMATION
  Report Type: Report from Study
  Country: US (occurrence: US)
  Receive Date: 20180115
  Receipt Date: 20180509
  Transmission Date: 20180711
  Serious: No
  Sender: FDA-Public Use
  Company Number: PHEH2018US001876

PATIENT
  Age: 73 Year
  Sex: Male

DRUGS (1)
  1. COSENTYX [Suspect]
     Active Substance: SECUKINUMAB
     Indication: PSORIASIS
     Dosage: 300 MG, QMO
     Route: 058

REACTIONS (4)
  - Incorrect dose administered [Unknown]
  - Pruritus generalised [Unknown]
  - Psoriasis [Unknown]
  - Device issue [Unknown]

NARRATIVE: CASE EVENT DATE: 20180111
